FAERS Safety Report 17651629 (Version 1)
Quarter: 2020Q2

REPORT INFORMATION
  Report Type: Spontaneous
  Country: US (occurrence: US)
  Receive Date: 20200409
  Receipt Date: 20200409
  Transmission Date: 20200713
  Serious: Yes (Hospitalization)
  Sender: FDA-Public Use
  Company Number: US-LOREAL USA PRODUCTS, INC.-2020LOR00001

PATIENT
  Sex: Female

DRUGS (2)
  1. STUDY PRODUCT 4332100919 [Suspect]
     Active Substance: INVESTIGATIONAL PRODUCT
  2. REVITALIFT UV [Suspect]
     Active Substance: AVOBENZONE\ECAMSULE\OCTOCRYLENE

REACTIONS (1)
  - Chronic obstructive pulmonary disease [Recovered/Resolved]
